FAERS Safety Report 5270088-7 (Version None)
Quarter: 2007Q1

REPORT INFORMATION
  Report Type: 
  Country: None (occurrence: None)
  Receive Date: 20061213
  Receipt Date: 20051219
  Transmission Date: 20070707
  Serious: No
  Sender: FDA-Public Use
  Company Number: 2005UW14341

PATIENT
  Age: 58 Year
  Sex: Female
  Weight: 96.1626 kg

DRUGS (4)
  1. TAMOXIFEN CITRATE [Suspect]
     Indication: BREAST CANCER
     Dosage: 10 MG BID PO
     Route: 048
     Dates: start: 20040609, end: 20040812
  2. NORVASC [Concomitant]
  3. AMARYL [Concomitant]
  4. NEXIUM [Concomitant]

REACTIONS (1)
  - VAGINAL HAEMORRHAGE [None]
